FAERS Safety Report 9657237 (Version 3)
Quarter: 2013Q4

REPORT INFORMATION
  Report Type: Report from Study
  Country: US (occurrence: US)
  Receive Date: 20131030
  Receipt Date: 20131227
  Transmission Date: 20140711
  Serious: Yes (Other)
  Sender: FDA-Public Use
  Company Number: US-US-EMD SERONO, INC.-7245328

PATIENT
  Sex: Female
  Weight: 70 kg

DRUGS (5)
  1. REBIF [Suspect]
     Indication: RELAPSING-REMITTING MULTIPLE SCLEROSIS
     Route: 058
     Dates: start: 200211, end: 201208
  2. REBIF [Suspect]
     Route: 058
     Dates: start: 20130816
  3. PREDNISONE [Concomitant]
     Indication: PRODUCT USED FOR UNKNOWN INDICATION
  4. AMANTADINE [Concomitant]
     Indication: PRODUCT USED FOR UNKNOWN INDICATION
  5. LYRICA [Concomitant]
     Indication: PRODUCT USED FOR UNKNOWN INDICATION

REACTIONS (9)
  - Optic neuritis [Recovered/Resolved]
  - Blindness [Recovering/Resolving]
  - Migraine with aura [Recovering/Resolving]
  - Vertigo positional [Unknown]
  - Hypertension [Not Recovered/Not Resolved]
  - Arthritis [Unknown]
  - Musculoskeletal pain [Unknown]
  - Injection site pain [Recovering/Resolving]
  - Fatigue [Recovering/Resolving]
